FAERS Safety Report 4979606-7 (Version None)
Quarter: 2006Q2

REPORT INFORMATION
  Report Type: 
  Country: None (occurrence: None)
  Receive Date: 20060421
  Receipt Date: 20060410
  Transmission Date: 20061013
  Serious: Yes (Disabling)
  Sender: FDA-Public Use
  Company Number: GB-ROCHE-444160

PATIENT
  Age: 76 Year
  Sex: Male
  Weight: 85 kg

DRUGS (5)
  1. LARIAM [Suspect]
     Indication: MALARIA PROPHYLAXIS
     Route: 048
     Dates: start: 20050922, end: 20051020
  2. VOLTAREN [Concomitant]
     Indication: MUSCLE STRAIN
     Route: 030
     Dates: start: 20051018
  3. SIMVASTATIN [Concomitant]
     Indication: HYPERCHOLESTEROLAEMIA
     Route: 048
     Dates: start: 20050715
  4. NORFLEX [Concomitant]
     Indication: MUSCLE STRAIN
     Route: 048
     Dates: start: 20051018
  5. UNSPECIFIED MEDICATION [Concomitant]
     Indication: MUSCLE STRAIN
     Route: 048

REACTIONS (1)
  - RETINAL ARTERY OCCLUSION [None]
